FAERS Safety Report 9840090 (Version 1)
Quarter: 2014Q1

REPORT INFORMATION
  Report Type: Spontaneous
  Country: US (occurrence: US)
  Receive Date: 20140124
  Receipt Date: 20140124
  Transmission Date: 20141002
  Serious: Yes (Other)
  Sender: FDA-Public Use
  Company Number: US-BAYER-2014-011609

PATIENT
  Sex: Female

DRUGS (1)
  1. BETASERON [Suspect]
     Indication: MULTIPLE SCLEROSIS
     Dosage: 0.25 MG, QOD
     Route: 058
     Dates: start: 2010

REACTIONS (7)
  - Injection site infection [Recovered/Resolved]
  - Injection site erythema [None]
  - Injection site bruising [None]
  - Injection site pruritus [None]
  - Injection site pain [None]
  - Injection site mass [None]
  - Wrong technique in drug usage process [None]
